FAERS Safety Report 15896277 (Version 1)
Quarter: 2019Q1

REPORT INFORMATION
  Report Type: Spontaneous
  Country: CZ (occurrence: CZ)
  Receive Date: 20190131
  Receipt Date: 20190131
  Transmission Date: 20190417
  Serious: Yes (Death)
  Sender: FDA-Public Use
  Company Number: CZ-ALLERGAN-1904305US

PATIENT
  Age: 87 Year
  Sex: Male

DRUGS (1)
  1. CEFTAZIDIME;AVIBACTAM - BP [Suspect]
     Active Substance: AVIBACTAM SODIUM\CEFTAZIDIME
     Indication: CYSTITIS PSEUDOMONAL
     Dosage: 1.25 MG, Q8HR
     Route: 065

REACTIONS (1)
  - Fatigue [Fatal]
